FAERS Safety Report 6643457-8 (Version None)
Quarter: 2010Q1

REPORT INFORMATION
  Report Type: 
  Country: None (occurrence: None)
  Receive Date: 20100319
  Receipt Date: 20100308
  Transmission Date: 20100710
  Serious: Yes (Hospitalization)
  Sender: FDA-Public Use
  Company Number: GB-WATSON-2010-02881

PATIENT

DRUGS (7)
  1. RAMIPRIL [Suspect]
     Indication: DRUG USE FOR UNKNOWN INDICATION
     Dosage: 1 1/4 MG, DAILY
     Route: 048
     Dates: start: 20091005, end: 20091105
  2. RAMIPRIL [Suspect]
     Dosage: 1 1/4 MG, BID
     Route: 048
     Dates: start: 20090925, end: 20091005
  3. PREDNISOLONE [Concomitant]
     Indication: COUGH
     Dosage: UNK
     Route: 048
     Dates: start: 20090929
  4. PREDNISOLONE [Concomitant]
     Indication: DYSPNOEA
  5. SERETIDE                           /01420901/ [Concomitant]
     Indication: CHRONIC OBSTRUCTIVE PULMONARY DISEASE
     Dosage: 500 MCG, BID
     Route: 055
  6. SPIRIVA [Concomitant]
     Indication: CHRONIC OBSTRUCTIVE PULMONARY DISEASE
     Dosage: 18 MCG, DAILY
     Route: 055
  7. VENTOLIN [Concomitant]
     Indication: CHRONIC OBSTRUCTIVE PULMONARY DISEASE
     Dosage: 2 DF, PRN
     Route: 055

REACTIONS (2)
  - CHRONIC OBSTRUCTIVE PULMONARY DISEASE [None]
  - COUGH [None]
